FAERS Safety Report 7099423-4 (Version None)
Quarter: 2010Q4

REPORT INFORMATION
  Report Type: 
  Country: None (occurrence: None)
  Receive Date: 20101112
  Receipt Date: 20101103
  Transmission Date: 20110411
  Serious: Yes (Life-Threatening)
  Sender: FDA-Public Use
  Company Number: US-JNJFOC-20101102279

PATIENT
  Sex: Male
  Weight: 78.02 kg

DRUGS (15)
  1. REMICADE [Suspect]
     Indication: CROHN'S DISEASE
     Route: 042
  2. REMICADE [Suspect]
     Route: 042
  3. REMICADE [Suspect]
     Route: 042
  4. REMICADE [Suspect]
     Route: 042
  5. REMICADE [Suspect]
     Route: 042
  6. REMICADE [Suspect]
     Route: 042
  7. REMICADE [Suspect]
     Route: 042
  8. REMICADE [Suspect]
     Route: 042
  9. REMICADE [Suspect]
     Dosage: 39 DOSES ADMINISTERED IN TREAT
     Route: 042
  10. REMICADE [Suspect]
     Dosage: 5 DOSES PRIOR TO TREAT REGISTRATION
     Route: 042
  11. REMICADE [Suspect]
     Dosage: DOSE STRENGTH NOT PROVIDED FOR THIS TIME FRAME
     Route: 042
  12. CIMZIA [Suspect]
     Indication: CROHN'S DISEASE
  13. AZATHIOPRINE [Suspect]
     Indication: CROHN'S DISEASE
  14. PREDNISONE [Concomitant]
     Indication: CROHN'S DISEASE
  15. QUESTRAN [Concomitant]
     Indication: CROHN'S DISEASE

REACTIONS (1)
  - LYMPHOMA [None]
